FAERS Safety Report 23262310 (Version 2)
Quarter: 2024Q1

REPORT INFORMATION
  Report Type: Report from Study
  Country: US (occurrence: US)
  Receive Date: 20231205
  Receipt Date: 20240112
  Transmission Date: 20240409
  Serious: No
  Sender: FDA-Public Use
  Company Number: US-AstraZeneca-CH-00520349A

PATIENT
  Sex: Male

DRUGS (1)
  1. STRENSIQ [Suspect]
     Active Substance: ASFOTASE ALFA
     Indication: Hypophosphatasia
     Dosage: UNK
     Route: 065

REACTIONS (4)
  - Pyrexia [Unknown]
  - Anxiety [Unknown]
  - Injection site pain [Unknown]
  - Musculoskeletal stiffness [Unknown]
